FAERS Safety Report 18171879 (Version 2)
Quarter: 2022Q2

REPORT INFORMATION
  Report Type: Report from Study
  Country: CA (occurrence: CA)
  Receive Date: 20200819
  Receipt Date: 20220620
  Transmission Date: 20220721
  Serious: Yes (Other)
  Sender: FDA-Public Use
  Company Number: CA-BAUSCH-BL-2020-023001

PATIENT
  Age: 62 Year
  Sex: Male

DRUGS (9)
  1. ALBUTEROL SULFATE [Suspect]
     Active Substance: ALBUTEROL SULFATE
     Indication: Asthma
     Route: 065
  2. ALBUTEROL SULFATE [Suspect]
     Active Substance: ALBUTEROL SULFATE
     Route: 065
  3. PREDNISONE [Suspect]
     Active Substance: PREDNISONE
     Indication: Asthma
     Dosage: NOT SPECIFIED
     Route: 065
  4. SPIRIVA RESPIMAT [Suspect]
     Active Substance: TIOTROPIUM BROMIDE
     Indication: Asthma
     Dosage: ORAL INHALATION WITH RESPIMAT INHALER ONLY. 5G/DOSE
     Route: 055
  5. ZENHALE [Suspect]
     Active Substance: FORMOTEROL FUMARATE\MOMETASONE FUROATE
     Indication: Asthma
     Dosage: AEROSOL, METERED DOSE
     Route: 055
  6. ZENHALE [Suspect]
     Active Substance: FORMOTEROL FUMARATE\MOMETASONE FUROATE
     Dosage: AEROSOL, METERED DOSE
     Route: 055
  7. MEPOLIZUMAB [Suspect]
     Active Substance: MEPOLIZUMAB
     Indication: Asthma
     Route: 058
  8. NUCALA [Suspect]
     Active Substance: MEPOLIZUMAB
     Indication: Asthma
     Route: 042
  9. TIOTROPIUM BROMIDE MONOHYDRATE [Suspect]
     Active Substance: TIOTROPIUM BROMIDE MONOHYDRATE
     Indication: Asthma
     Route: 055

REACTIONS (10)
  - Asthma [Unknown]
  - Dyspnoea [Unknown]
  - Eosinophil count abnormal [Unknown]
  - Loss of personal independence in daily activities [Unknown]
  - Sleep disorder due to a general medical condition [Unknown]
  - Foot fracture [Unknown]
  - Pruritus [Unknown]
  - Wheezing [Unknown]
  - Drug ineffective [Unknown]
  - Therapeutic product effect incomplete [Unknown]
